FAERS Safety Report 15431111 (Version 3)
Quarter: 2018Q4

REPORT INFORMATION
  Report Type: Report from Study
  Country: PT (occurrence: PT)
  Receive Date: 20180926
  Receipt Date: 20181009
  Transmission Date: 20190204
  Serious: Yes (Life-Threatening, Other)
  Sender: FDA-Public Use
  Company Number: PT-GLAXOSMITHKLINE-PT2018172080

PATIENT
  Age: 32 Year
  Sex: Male

DRUGS (15)
  1. LAMIVUDINE. [Suspect]
     Active Substance: LAMIVUDINE
     Indication: HIV INFECTION
  2. LAMIVUDINE. [Suspect]
     Active Substance: LAMIVUDINE
     Indication: CHRONIC HEPATITIS C
  3. METHADONE [Suspect]
     Active Substance: METHADONE HYDROCHLORIDE
     Indication: CHRONIC HEPATITIS C
  4. GABAPENTIN. [Suspect]
     Active Substance: GABAPENTIN
     Indication: CHRONIC HEPATITIS C
  5. DIDANOSINE. [Suspect]
     Active Substance: DIDANOSINE
     Indication: HEPATITIS C
     Dosage: 1 ML OF TRIAMCINOLONE 40 MG INJECTED
     Route: 065
  6. METHADONE [Suspect]
     Active Substance: METHADONE HYDROCHLORIDE
     Indication: HEPATITIS C
     Dosage: 1 ML OF TRIAMCINOLONE 40 MG INJECTED
     Route: 065
  7. EFAVIRENZ. [Suspect]
     Active Substance: EFAVIRENZ
     Indication: HEPATITIS C
     Dosage: 1 ML OF TRIAMCINOLONE 40 MG INJECTED
     Route: 065
  8. GABAPENTIN. [Suspect]
     Active Substance: GABAPENTIN
     Indication: HIV INFECTION
  9. DIDANOSINE. [Suspect]
     Active Substance: DIDANOSINE
     Indication: HIV INFECTION
  10. METHADONE [Suspect]
     Active Substance: METHADONE HYDROCHLORIDE
     Indication: HIV INFECTION
  11. DIDANOSINE. [Suspect]
     Active Substance: DIDANOSINE
     Indication: CHRONIC HEPATITIS C
  12. EFAVIRENZ. [Suspect]
     Active Substance: EFAVIRENZ
     Indication: HIV INFECTION
  13. EFAVIRENZ. [Suspect]
     Active Substance: EFAVIRENZ
     Indication: CHRONIC HEPATITIS C
  14. LAMIVUDINE. [Suspect]
     Active Substance: LAMIVUDINE
     Indication: HEPATITIS C
     Dosage: UNK
     Route: 065
  15. GABAPENTIN. [Suspect]
     Active Substance: GABAPENTIN
     Indication: HEPATITIS C
     Dosage: 1 ML OF TRIAMCINOLONE 40 MG INJECTED
     Route: 065

REACTIONS (2)
  - Drug-induced liver injury [Unknown]
  - Hepatic fibrosis [Unknown]
